FAERS Safety Report 23172094 (Version 1)
Quarter: 2023Q4

REPORT INFORMATION
  Report Type: Spontaneous
  Country: US (occurrence: None)
  Receive Date: 20231110
  Receipt Date: 20231110
  Transmission Date: 20240109
  Serious: Yes (Other)
  Sender: FDA-Public Use
  Company Number: None

PATIENT
  Age: 25 Year
  Sex: Male

DRUGS (8)
  1. EMGALITY [Suspect]
     Active Substance: GALCANEZUMAB-GNLM
     Dosage: FREQUENCY : MONTHLY;?
     Route: 058
     Dates: start: 20221219
  2. GABAPENTIN [Concomitant]
     Active Substance: GABAPENTIN
  3. MAGNESIUM [Concomitant]
     Active Substance: MAGNESIUM
  4. CYBLOBENZAPRINE [Concomitant]
  5. ACETAMINOPHEN\BUTABARBITAL\CAFFEINE [Concomitant]
     Active Substance: ACETAMINOPHEN\BUTABARBITAL\CAFFEINE
  6. IBUPROFEN [Concomitant]
     Active Substance: IBUPROFEN
  7. BUSPAR [Suspect]
     Active Substance: BUSPIRONE HYDROCHLORIDE
  8. VITAMIN D [Concomitant]
     Active Substance: VITAMIN D NOS

REACTIONS (2)
  - Cardiomegaly [None]
  - Left ventricular failure [None]

NARRATIVE: CASE EVENT DATE: 20231110
